FAERS Safety Report 7077469-X (Version None)
Quarter: 2010Q4

REPORT INFORMATION
  Report Type: 
  Country: None (occurrence: None)
  Receive Date: 20101101
  Receipt Date: 20101020
  Transmission Date: 20110411
  Serious: Yes (Other)
  Sender: FDA-Public Use
  Company Number: DE-ELI_LILLY_AND_COMPANY-DE201010004751

PATIENT
  Age: 61 Year
  Sex: Female

DRUGS (6)
  1. FORTEO [Suspect]
     Indication: OSTEOPOROSIS
     Dosage: UNK, UNKNOWN
     Route: 058
     Dates: start: 20100809
  2. PANTOPRAZOLE SODIUM [Concomitant]
     Dosage: UNK, UNKNOWN
     Route: 065
  3. PROPRANOLOL HCL RATIOPHARM [Concomitant]
     Dosage: UNK, UNKNOWN
     Route: 065
  4. LEVOTHYROXINE SODIUM [Concomitant]
     Dosage: UNK, UNKNOWN
     Route: 065
  5. SIMVASTATIN [Concomitant]
     Dosage: UNK, UNKNOWN
     Route: 065
  6. DEKRISTOL [Concomitant]
     Dosage: UNK, UNKNOWN
     Route: 065

REACTIONS (6)
  - ARTHRALGIA [None]
  - CONVULSION [None]
  - MYALGIA [None]
  - REFLUX OESOPHAGITIS [None]
  - VOCAL CORD DISORDER [None]
  - WEIGHT INCREASED [None]
